FAERS Safety Report 6370788-1 (Version None)
Quarter: 2009Q3

REPORT INFORMATION
  Report Type: 
  Country: None (occurrence: None)
  Receive Date: 20090923
  Receipt Date: 20070518
  Transmission Date: 20100115
  Serious: Yes (Disabling, Other)
  Sender: FDA-Public Use
  Company Number: US-ASTRAZENECA-2006UW23718

PATIENT
  Age: 16310 Day
  Sex: Male
  Weight: 116.1 kg

DRUGS (27)
  1. SEROQUEL [Suspect]
     Indication: BIPOLAR DISORDER
     Route: 048
     Dates: start: 20040308, end: 20050110
  2. SEROQUEL [Suspect]
     Indication: SLEEP DISORDER
     Route: 048
     Dates: start: 20040308, end: 20050110
  3. SEROQUEL [Suspect]
     Dosage: 50MG TO 700MG (FLUCTUATING)
     Route: 048
     Dates: start: 20040308, end: 20050109
  4. SEROQUEL [Suspect]
     Dosage: 50MG TO 700MG (FLUCTUATING)
     Route: 048
     Dates: start: 20040308, end: 20050109
  5. SEROQUEL [Suspect]
     Dosage: 50MG TO 600MG (FLUCTUATING)
     Route: 048
     Dates: start: 20050412
  6. SEROQUEL [Suspect]
     Dosage: 50MG TO 600MG (FLUCTUATING)
     Route: 048
     Dates: start: 20050412
  7. ABILIFY [Concomitant]
     Dates: start: 20050101
  8. ABILIFY [Concomitant]
     Dosage: 15MG TO 30MG, AT NIGHT
     Route: 048
     Dates: start: 20050517
  9. GEODON [Concomitant]
     Dates: start: 20050101
  10. GEODON [Concomitant]
     Dosage: 40MG IN MORNING, 120MG IN EVENING
     Dates: start: 20050426
  11. RISPERDAL [Concomitant]
     Dates: start: 20050101
  12. BUSPAR [Concomitant]
  13. BUSPAR [Concomitant]
     Dates: start: 20060629
  14. GLIPIZIDE [Concomitant]
     Route: 048
     Dates: start: 20050725
  15. DEPAKOTE [Concomitant]
     Indication: AFFECTIVE DISORDER
     Dosage: 500MG TO 2500MG, AT NIGHT
     Route: 048
     Dates: start: 20040325
  16. VALIUM [Concomitant]
     Dosage: 10MG TO 30MG, DAILY
     Route: 048
     Dates: start: 19990702
  17. ATENOLOL [Concomitant]
     Dosage: 50MG TO 75MG (FLUCTUATING)
     Route: 048
     Dates: start: 20050412
  18. LITHIUM [Concomitant]
     Dosage: 300MG TO 600MG, DAILY
     Route: 048
     Dates: start: 20050524
  19. KLONOPIN [Concomitant]
     Route: 048
     Dates: start: 20050412
  20. AMBIEN [Concomitant]
     Dosage: 10MG, ONE TO TWO AT NIGHT PM
     Route: 048
     Dates: start: 20050112
  21. LORAZEPAM [Concomitant]
     Indication: ANXIETY
     Dosage: 1MG TAB-HALF TO ONE EVERY FOUR HOURS
     Route: 048
     Dates: start: 20040920
  22. REMERON [Concomitant]
     Dosage: 30MG TO 60MG, AT NIGHT
     Dates: start: 20060629
  23. REQUIP [Concomitant]
     Dosage: STRENGHT-0.5MG TO 2MG
     Dates: start: 20060629
  24. WELLBUTRIN [Concomitant]
     Dates: start: 20050502
  25. LORTAB [Concomitant]
     Indication: PAIN
     Route: 048
     Dates: start: 19971017
  26. PROPRANOLOL [Concomitant]
     Route: 048
     Dates: start: 20040920
  27. ROZEREM [Concomitant]
     Dates: start: 20061213

REACTIONS (3)
  - DIABETES MELLITUS [None]
  - TARDIVE DYSKINESIA [None]
  - TYPE 2 DIABETES MELLITUS [None]
